FAERS Safety Report 16232686 (Version 1)
Quarter: 2019Q2

REPORT INFORMATION
  Report Type: Spontaneous
  Country: US (occurrence: US)
  Receive Date: 20190424
  Receipt Date: 20190424
  Transmission Date: 20190711
  Serious: No
  Sender: FDA-Public Use
  Company Number: US-DRREDDYS-USA/USA/19/0109734

PATIENT
  Sex: Female
  Weight: 71.8 kg

DRUGS (3)
  1. IBUPROFEN 400,600,800 MG FILM COATED TABLETS [Suspect]
     Active Substance: IBUPROFEN
     Route: 048
     Dates: start: 20190423
  2. IBUPROFEN 400,600,800 MG FILM COATED TABLETS [Suspect]
     Active Substance: IBUPROFEN
     Indication: PAIN
     Dosage: AS NEEDED
     Route: 048
     Dates: start: 20190301
  3. CYCLOBENZAPRINE. [Concomitant]
     Active Substance: CYCLOBENZAPRINE
     Indication: PRODUCT USED FOR UNKNOWN INDICATION

REACTIONS (3)
  - Therapeutic product ineffective [Unknown]
  - Incorrect dose administered [Unknown]
  - Product quality issue [Unknown]
